APPROVED DRUG PRODUCT: TWINJECT
Active Ingredient: EPINEPHRINE
Strength: EQ 0.15MG/DELIVERY
Dosage Form/Route: INJECTABLE;INTRAMUSCULAR, SUBCUTANEOUS
Application: N020800 | Product #002
Applicant: IMPAX LABORATORIES LLC
Approved: May 28, 2004 | RLD: No | RS: No | Type: DISCN